FAERS Safety Report 5488313-6 (Version None)
Quarter: 2007Q4

REPORT INFORMATION
  Report Type: 
  Country: None (occurrence: None)
  Receive Date: 20071017
  Receipt Date: 20071009
  Transmission Date: 20080405
  Serious: Yes (Other)
  Sender: FDA-Public Use
  Company Number: HN-WYE-H00570507

PATIENT
  Age: 30 Year
  Sex: Female

DRUGS (1)
  1. PANTECTA [Suspect]
     Indication: PEPTIC ULCER
     Dosage: 40 MG FREQUENCY UNSPECIFIED
     Route: 042
     Dates: start: 20030101

REACTIONS (3)
  - CYANOSIS [None]
  - PALLOR [None]
  - SYNCOPE [None]
